FAERS Safety Report 15711007 (Version 2)
Quarter: 2019Q2

REPORT INFORMATION
  Report Type: Report from Study
  Country: DE (occurrence: DE)
  Receive Date: 20181211
  Receipt Date: 20190630
  Transmission Date: 20190711
  Serious: Yes (Hospitalization, Other)
  Sender: FDA-Public Use
  Company Number: DE-JNJFOC-20181204452

PATIENT
  Age: 65 Year
  Sex: Female
  Weight: 74 kg

DRUGS (1)
  1. STELARA [Suspect]
     Active Substance: USTEKINUMAB
     Indication: CROHN^S DISEASE
     Route: 058
     Dates: start: 20180903

REACTIONS (1)
  - Colectomy [Recovered/Resolved]

NARRATIVE: CASE EVENT DATE: 20181112
